FAERS Safety Report 4629208-7 (Version None)
Quarter: 2005Q2

REPORT INFORMATION
  Report Type: 
  Country: None (occurrence: None)
  Receive Date: 20050405
  Receipt Date: 20050308
  Transmission Date: 20051028
  Serious: Yes (Hospitalization)
  Sender: FDA-Public Use
  Company Number: REM_00093_2005

PATIENT
  Age: 69 Year
  Sex: Female
  Weight: 85.3 kg

DRUGS (14)
  1. REMODULIN [Suspect]
     Indication: PULMONARY HYPERTENSION
     Dosage: 18.6 NG/KG/MIN CONTINUOUS SC
     Route: 058
     Dates: start: 20041113, end: 20050301
  2. REMODULIN [Suspect]
     Indication: PULMONARY HYPERTENSION
     Dosage: 13 NG/KG/MIN CONTINUOUS SC
     Route: 058
     Dates: start: 20050301, end: 20050324
  3. REMODULIN [Suspect]
     Indication: PULMONARY HYPERTENSION
     Dosage: 13.73 NG/KG/MIN CONTINUOUS SC
     Route: 058
     Dates: start: 20050324, end: 20050330
  4. REMODULIN [Suspect]
     Indication: PULMONARY HYPERTENSION
     Dosage: 14.5 NG/KG/MIN CONTINUOUS SC
     Route: 058
     Dates: start: 20050330
  5. TRACLEER [Concomitant]
  6. DIGOXIN [Concomitant]
  7. RANITIDINE [Concomitant]
  8. LIPITOR [Concomitant]
  9. COUMADIN [Concomitant]
  10. LASIX [Concomitant]
  11. VERAPAMIL [Concomitant]
  12. TRAZADONE [Concomitant]
  13. LITHIUM CARBONATE [Concomitant]
  14. OXYGEN [Concomitant]

REACTIONS (1)
  - PANCREATITIS [None]
